FAERS Safety Report 6024138-0 (Version None)
Quarter: 2008Q4

REPORT INFORMATION
  Report Type: 
  Country: None (occurrence: None)
  Receive Date: 20081230
  Receipt Date: 20081222
  Transmission Date: 20090506
  Serious: Yes (Disabling, Other)
  Sender: FDA-Public Use
  Company Number: DE-ABBOTT-08P-062-0492658-00

PATIENT
  Sex: Male

DRUGS (2)
  1. HUMIRA [Suspect]
     Indication: PSORIATIC ARTHROPATHY
     Dosage: A TOTAL OF 2 SHOTS
     Route: 058
  2. HUMIRA [Suspect]
     Indication: PSORIASIS

REACTIONS (7)
  - BEDRIDDEN [None]
  - COGNITIVE DISORDER [None]
  - COMMUNICATION DISORDER [None]
  - DECREASED ACTIVITY [None]
  - DEMENTIA [None]
  - DISORIENTATION [None]
  - WEIGHT DECREASED [None]
